FAERS Safety Report 9065100 (Version 1)
Quarter: 2013Q1

REPORT INFORMATION
  Report Type: Spontaneous
  Country: IT (occurrence: IT)
  Receive Date: 20130128
  Receipt Date: 20130128
  Transmission Date: 20140127
  Serious: Yes (Other)
  Sender: FDA-Public Use
  Company Number: PHHY2013IT007173

PATIENT
  Sex: Male

DRUGS (2)
  1. ZOMETA [Suspect]
     Indication: RENAL CANCER
     Dosage: UNK UKN, UNK
     Dates: start: 20080601, end: 20120501
  2. ZOMETA [Suspect]
     Indication: METASTASES TO BONE

REACTIONS (2)
  - Osteonecrosis of jaw [Not Recovered/Not Resolved]
  - Primary sequestrum [Not Recovered/Not Resolved]
